FAERS Safety Report 11297981 (Version 1)
Quarter: 2015Q3

REPORT INFORMATION
  Report Type: Spontaneous
  Country: US (occurrence: US)
  Receive Date: 20150722
  Receipt Date: 20150722
  Transmission Date: 20151125
  Serious: No
  Sender: FDA-Public Use
  Company Number: US-ELI_LILLY_AND_COMPANY-US201101001692

PATIENT
  Sex: Male

DRUGS (1)
  1. HUMATROPE [Suspect]
     Active Substance: SOMATROPIN
     Dosage: 6 MG, UNK
     Dates: start: 20090917, end: 20110105

REACTIONS (4)
  - Headache [Unknown]
  - Fatigue [Unknown]
  - Muscle tightness [Unknown]
  - Swelling [Unknown]
